FAERS Safety Report 6859595-0 (Version None)
Quarter: 2010Q3

REPORT INFORMATION
  Report Type: 
  Country: None (occurrence: None)
  Receive Date: 20100716
  Receipt Date: 20100707
  Transmission Date: 20110219
  Serious: Yes (Hospitalization)
  Sender: FDA-Public Use
  Company Number: 2010US002669

PATIENT
  Age: 50 Year
  Sex: Male

DRUGS (19)
  1. PROGRAF [Suspect]
     Indication: HEART AND LUNG TRANSPLANT
     Dosage: 2 MG AM/1 MG PM, ORAL
     Route: 048
     Dates: start: 19970718
  2. RAPAMUNE [Concomitant]
  3. LEXAPRO [Concomitant]
  4. FOSAMAX PLUS D [Concomitant]
  5. ADVAIR (FLUTICASONE PROPIONATE, SALMETEROL XINAFOATE) INHALATION [Concomitant]
  6. ASPIRIN [Concomitant]
  7. AZITHROMYCIN [Concomitant]
  8. BACTRIM [Concomitant]
  9. CARDIZEM CD [Concomitant]
  10. GLIPIZIDE [Concomitant]
  11. HUMULIN 70/30 (INSULIN HUMAN, INSULIN HUMAN INJECTION, ISOPHANE) [Concomitant]
  12. LIPITOR [Concomitant]
  13. LISINOPRIL [Concomitant]
  14. LOPRESSOR [Concomitant]
  15. MAGNESIUM OXIDE (MAGNESIUM OXIDE) [Concomitant]
  16. PLAVIX [Concomitant]
  17. PREDNISONE TAB [Concomitant]
  18. CELLCEPT [Concomitant]
  19. PROTONIX [Concomitant]

REACTIONS (1)
  - CORONARY ARTERY BYPASS [None]
